FAERS Safety Report 10655229 (Version 1)
Quarter: 2014Q4

REPORT INFORMATION
  Report Type: Spontaneous
  Country: FR (occurrence: FR)
  Receive Date: 20141216
  Receipt Date: 20141216
  Transmission Date: 20150529
  Serious: Yes (Hospitalization, Other)
  Sender: FDA-Public Use
  Company Number: FR-PFIZER INC-2014341136

PATIENT
  Age: 69 Year
  Sex: Female

DRUGS (6)
  1. ZOLOFT [Suspect]
     Active Substance: SERTRALINE HYDROCHLORIDE
     Dosage: 25 MG, 1X/DAY
     Route: 048
     Dates: end: 201308
  2. LYSANXIA [Suspect]
     Active Substance: PRAZEPAM
     Dosage: 5 MG, 1X/DAY
     Route: 048
     Dates: end: 201308
  3. IMOVANE [Suspect]
     Active Substance: ZOPICLONE
     Dosage: 7.5 MG, UNK
     Route: 048
  4. DOLIPRANE [Suspect]
     Active Substance: ACETAMINOPHEN
     Dosage: 1000 MG, UNK
     Route: 048
     Dates: end: 201308
  5. FOSRENOL [Suspect]
     Active Substance: LANTHANUM CARBONATE
     Dosage: 750 MG, 3X/DAY
     Route: 048
     Dates: end: 201308
  6. SERESTA [Suspect]
     Active Substance: OXAZEPAM
     Dosage: 5 MG, 3X/DAY
     Route: 048

REACTIONS (3)
  - Hyponatraemia [Unknown]
  - Drug-induced liver injury [Recovered/Resolved]
  - Cholestasis [Unknown]

NARRATIVE: CASE EVENT DATE: 2013
